FAERS Safety Report 9607588 (Version 2)
Quarter: 2013Q4

REPORT INFORMATION
  Report Type: Spontaneous
  Country: US (occurrence: US)
  Receive Date: 20131009
  Receipt Date: 20131009
  Transmission Date: 20140711
  Serious: No
  Sender: FDA-Public Use
  Company Number: PHEH2013US016559

PATIENT
  Age: 39 Year
  Sex: Female
  Weight: 63.39 kg

DRUGS (4)
  1. ILARIS [Suspect]
     Indication: MUCKLE-WELLS SYNDROME
     Dosage: 150 MG, EVERY 8 WEEKS
     Route: 058
     Dates: start: 201305
  2. ILARIS [Suspect]
     Dosage: 300 MG, EVERY 8 WEEKS
     Route: 058
     Dates: start: 201307
  3. AMITRIPTYLIN [Concomitant]
  4. BUPROPION [Concomitant]

REACTIONS (5)
  - Angioedema [Unknown]
  - Arthralgia [Unknown]
  - Conjunctivitis [Unknown]
  - Oedema [Unknown]
  - Weight increased [Unknown]
